FAERS Safety Report 9264000 (Version 1)
Quarter: 2013Q2

REPORT INFORMATION
  Report Type: Spontaneous
  Country: SI (occurrence: SI)
  Receive Date: 20130430
  Receipt Date: 20130430
  Transmission Date: 20140414
  Serious: Yes (Other)
  Sender: FDA-Public Use
  Company Number: SI-GLAXOSMITHKLINE-B0888354A

PATIENT
  Age: 60 Year
  Sex: Male

DRUGS (1)
  1. ARIXTRA [Suspect]
     Indication: THROMBOPHLEBITIS
     Dosage: 2.5MG PER DAY
     Route: 065

REACTIONS (1)
  - Renal impairment [Unknown]
